FAERS Safety Report 5235966-3 (Version None)
Quarter: 2007Q1

REPORT INFORMATION
  Report Type: 
  Country: None (occurrence: None)
  Receive Date: 20061208
  Receipt Date: 20060616
  Transmission Date: 20070707
  Serious: Yes (Other)
  Sender: FDA-Public Use
  Company Number: 2006UW09968

PATIENT
  Age: 60 Year
  Sex: Male
  Weight: 95.254 kg

DRUGS (3)
  1. CRESTOR [Suspect]
     Indication: BLOOD CHOLESTEROL INCREASED
     Dosage: 5 MG PO
     Route: 048
     Dates: start: 20050101
  2. CRESTOR [Suspect]
     Indication: BLOOD CHOLESTEROL INCREASED
     Dosage: 10 MG PO
     Route: 048
     Dates: start: 20050801
  3. AVAPRO [Concomitant]

REACTIONS (6)
  - AMNESIA [None]
  - ASTHENIA [None]
  - DEPRESSION [None]
  - FATIGUE [None]
  - MYALGIA [None]
  - PARAESTHESIA [None]
